FAERS Safety Report 17280569 (Version 1)
Quarter: 2020Q1

REPORT INFORMATION
  Report Type: Spontaneous
  Country: US (occurrence: US)
  Receive Date: 20200117
  Receipt Date: 20200117
  Transmission Date: 20200409
  Serious: No
  Sender: FDA-Public Use
  Company Number: US-UCBSA-2019046814

PATIENT
  Age: 4 Year
  Sex: Male

DRUGS (7)
  1. PENTOBARBITAL. [Concomitant]
     Active Substance: PENTOBARBITAL
     Indication: STATUS EPILEPTICUS
     Dosage: 10 MG/KG
  2. PENTOBARBITAL. [Concomitant]
     Active Substance: PENTOBARBITAL
     Dosage: 5 MG/KG/HR
     Route: 041
  3. PENTOBARBITAL. [Concomitant]
     Active Substance: PENTOBARBITAL
     Dosage: REPEAT LOAD OF 9 MG/KG OVER 20 MINUTES
  4. LEVETIRACETAM. [Suspect]
     Active Substance: LEVETIRACETAM
     Indication: STATUS EPILEPTICUS
     Dosage: 30 MG/KG
  5. LEVETIRACETAM. [Suspect]
     Active Substance: LEVETIRACETAM
     Indication: OFF LABEL USE
  6. MIDAZOLAM HYDROCHLORIDE. [Concomitant]
     Active Substance: MIDAZOLAM HYDROCHLORIDE
     Indication: STATUS EPILEPTICUS
     Dosage: UNKNOWN DOSE
     Route: 041
  7. LORAZEPAM. [Concomitant]
     Active Substance: LORAZEPAM
     Indication: STATUS EPILEPTICUS
     Dosage: 1 MG/KG

REACTIONS (2)
  - Drug ineffective for unapproved indication [Unknown]
  - Off label use [Unknown]
